FAERS Safety Report 14908307 (Version 3)
Quarter: 2019Q1

REPORT INFORMATION
  Report Type: Spontaneous
  Country: SE (occurrence: SE)
  Receive Date: 20180517
  Receipt Date: 20190124
  Transmission Date: 20190417
  Serious: Yes (Death)
  Sender: FDA-Public Use
  Company Number: SE-PFIZER INC-2018202085

PATIENT
  Age: 66 Year
  Sex: Female

DRUGS (1)
  1. DOLCONTIN [Suspect]
     Active Substance: MORPHINE
     Indication: PAIN
     Dosage: UNK

REACTIONS (1)
  - Sudden death [Fatal]

NARRATIVE: CASE EVENT DATE: 20171008
